APPROVED DRUG PRODUCT: CAPTOPRIL
Active Ingredient: CAPTOPRIL
Strength: 100MG
Dosage Form/Route: TABLET;ORAL
Application: A074748 | Product #003
Applicant: EGIS PHARMACEUTICALS LTD
Approved: May 29, 1997 | RLD: No | RS: No | Type: DISCN